FAERS Safety Report 15232270 (Version 2)
Quarter: 2018Q3

REPORT INFORMATION
  Report Type: Spontaneous
  Country: EG (occurrence: EG)
  Receive Date: 20180802
  Receipt Date: 20180830
  Transmission Date: 20181010
  Serious: Yes (Other)
  Sender: FDA-Public Use
  Company Number: EG-JNJFOC-20180725033

PATIENT
  Age: 24 Year
  Sex: Female
  Weight: 70 kg

DRUGS (10)
  1. VITAMIN D3 [Concomitant]
     Active Substance: CHOLECALCIFEROL
     Route: 065
  2. TRENTAL [Concomitant]
     Active Substance: PENTOXIFYLLINE
     Route: 065
  3. ACETYLSALICYLIC ACID [Concomitant]
     Active Substance: ASPIRIN
     Route: 065
  4. SIMPONI [Suspect]
     Active Substance: GOLIMUMAB
     Indication: BEHCET^S SYNDROME
     Route: 058
     Dates: start: 20180716
  5. GAPTIN [Concomitant]
     Route: 065
  6. NEXIUM [Concomitant]
     Active Substance: ESOMEPRAZOLE MAGNESIUM
     Indication: PRODUCT USED FOR UNKNOWN INDICATION
     Route: 065
  7. ZADITEN [Concomitant]
     Active Substance: KETOTIFEN FUMARATE
     Route: 065
  8. NEORAL [Concomitant]
     Active Substance: CYCLOSPORINE
     Route: 065
  9. PREDNISOLONE. [Concomitant]
     Active Substance: PREDNISOLONE
     Route: 065
  10. PRAXILENE [Concomitant]
     Active Substance: NAFRONYL
     Route: 048

REACTIONS (23)
  - Off label use [Unknown]
  - Pyrexia [Unknown]
  - Nervousness [Not Recovered/Not Resolved]
  - Decreased appetite [Unknown]
  - Migraine [Unknown]
  - Swelling face [Unknown]
  - Dysuria [Recovering/Resolving]
  - Behcet^s syndrome [Unknown]
  - Polyuria [Recovering/Resolving]
  - Tachypnoea [Unknown]
  - Eye irritation [Unknown]
  - Dry mouth [Unknown]
  - Influenza like illness [Unknown]
  - Paraesthesia [Unknown]
  - Renal colic [Recovering/Resolving]
  - Vision blurred [Not Recovered/Not Resolved]
  - Fatigue [Unknown]
  - Product use in unapproved indication [Unknown]
  - Tachycardia [Unknown]
  - Limb discomfort [Unknown]
  - Headache [Unknown]
  - Allergic sinusitis [Unknown]
  - Diarrhoea [Unknown]

NARRATIVE: CASE EVENT DATE: 201807
